FAERS Safety Report 19774923 (Version 1)
Quarter: 2021Q3

REPORT INFORMATION
  Report Type: Spontaneous
  Country: US (occurrence: US)
  Receive Date: 20210901
  Receipt Date: 20210901
  Transmission Date: 20211014
  Serious: No
  Sender: FDA-Public Use
  Company Number: US-GALDERMA-US2021014798

PATIENT

DRUGS (7)
  1. DIFFERIN GEL [Suspect]
     Active Substance: ADAPALENE
     Indication: ACNE
     Dosage: 1 DOSAGE FORM, ONCE A DAY
     Route: 061
  2. THE ORDINARY MARINE HYALURONIC ACID SERUM [Concomitant]
     Indication: PRODUCT USED FOR UNKNOWN INDICATION
  3. LA ROCHE POSAY HYDRATING FACE WASH [Concomitant]
     Indication: PRODUCT USED FOR UNKNOWN INDICATION
     Dosage: 1 DOSAGE FORM, UNKNOWN
     Route: 065
  4. GABAPENTIN. [Concomitant]
     Active Substance: GABAPENTIN
     Indication: HEADACHE
     Dosage: 1 DOSAGE FORM, UNKNOWN
     Route: 065
  5. SERTRALINE [Concomitant]
     Active Substance: SERTRALINE HYDROCHLORIDE
     Indication: DEPRESSION
     Dosage: 1 DOSAGE FORM, UNKNOWN
     Route: 065
  6. DIFFERIN GEL [Suspect]
     Active Substance: ADAPALENE
     Dosage: 1 DOSAGE FORM, ONCE OR TWICE A WEEK
     Route: 061
     Dates: start: 2021
  7. FIRST AID BEAUTY ULTRA REPAIR CREAM [Concomitant]
     Active Substance: OATMEAL
     Indication: PRODUCT USED FOR UNKNOWN INDICATION

REACTIONS (4)
  - Sensitive skin [Recovered/Resolved]
  - Underdose [Recovered/Resolved]
  - Inappropriate schedule of product administration [Recovered/Resolved]
  - Skin exfoliation [Recovered/Resolved]
